FAERS Safety Report 23683865 (Version 1)
Quarter: 2024Q1

REPORT INFORMATION
  Report Type: Spontaneous
  Country: US (occurrence: US)
  Receive Date: 20240328
  Receipt Date: 20240328
  Transmission Date: 20240409
  Serious: No
  Sender: FDA-Public Use
  Company Number: US-002147023-NVSC2024US067181

PATIENT
  Sex: Male

DRUGS (1)
  1. LEQVIO [Suspect]
     Active Substance: INCLISIRAN SODIUM
     Indication: Low density lipoprotein increased
     Dosage: 284 MG (284 MG/1.5ML AND FIRST INJECTION, AGAIN AT 3 MONTHS, THEN EVERY 6 MONTHS THEREAFTER)
     Route: 058
     Dates: start: 20240301, end: 20240301

REACTIONS (1)
  - Low density lipoprotein increased [Unknown]

NARRATIVE: CASE EVENT DATE: 20240301
